FAERS Safety Report 5639746-6 (Version None)
Quarter: 2008Q1

REPORT INFORMATION
  Report Type: 
  Country: None (occurrence: None)
  Receive Date: 20080226
  Receipt Date: 20080221
  Transmission Date: 20080703
  Serious: Yes (Death)
  Sender: FDA-Public Use
  Company Number: US-BAYER-200811518NA

PATIENT
  Age: 57 Year
  Sex: Female
  Weight: 71 kg

DRUGS (3)
  1. CAMPATH [Suspect]
     Indication: ACUTE LEUKAEMIA
     Route: 041
     Dates: start: 20070111, end: 20070114
  2. CLOFARABINE [Suspect]
     Indication: ACUTE LEUKAEMIA
     Route: 041
     Dates: start: 20070111, end: 20070114
  3. LOPRESSOR [Concomitant]
     Indication: MYOCARDIAL ISCHAEMIA

REACTIONS (2)
  - BRONCHIOLITIS [None]
  - LUNG INJURY [None]
